FAERS Safety Report 9524829 (Version 1)
Quarter: 2013Q1

REPORT INFORMATION
  Report Type: Spontaneous
  Country: US (occurrence: None)
  Receive Date: 20130305
  Receipt Date: 20130305
  Transmission Date: 20140127
  Serious: Yes (Hospitalization)
  Sender: FDA-Public Use
  Company Number: 163-21880-12033399

PATIENT
  Age: 70 Year
  Sex: Male

DRUGS (2)
  1. REVLIMID [Suspect]
     Indication: PLASMA CELL MYELOMA
     Dosage: 10 MG CAPSULE, X 21 DAYS, PO
     Dates: start: 20110722, end: 20120312
  2. HCTZ (HYDROCHLOROTHIAZIDE) [Concomitant]

REACTIONS (2)
  - Urinary tract infection [None]
  - Renal impairment [None]
